FAERS Safety Report 4334231-6 (Version None)
Quarter: 2004Q2

REPORT INFORMATION
  Report Type: 
  Country: None (occurrence: None)
  Receive Date: 20040402
  Receipt Date: 20040316
  Transmission Date: 20050107
  Serious: Yes (Death, Hospitalization)
  Sender: FDA-Public Use
  Company Number: B0327275A

PATIENT
  Age: 63 Year
  Sex: 0

DRUGS (3)
  1. MYLERAN [Suspect]
     Indication: ESSENTIAL THROMBOCYTHAEMIA
     Dosage: CYCLIC
     Dates: start: 20000401, end: 20020401
  2. HYDROXYUREA [Suspect]
     Indication: ESSENTIAL THROMBOCYTHAEMIA
     Dosage: CYCLIC
     Dates: start: 19970101, end: 20000301
  3. ASPIRIN [Concomitant]

REACTIONS (19)
  - BACK PAIN [None]
  - BENCE JONES PROTEIN URINE PRESENT [None]
  - BIOPSY BONE MARROW ABNORMAL [None]
  - BLOOD LACTATE DEHYDROGENASE INCREASED [None]
  - CHROMOSOMAL DELETION [None]
  - DRUG INEFFECTIVE [None]
  - FATIGUE [None]
  - HAEMOGLOBIN DECREASED [None]
  - HYPERCALCAEMIA [None]
  - INTERVERTEBRAL DISC PROTRUSION [None]
  - LEUKAEMIA PLASMACYTIC [None]
  - MULTIPLE-DRUG RESISTANCE [None]
  - OSTEOLYSIS [None]
  - OSTEOPOROSIS [None]
  - PLATELET COUNT DECREASED [None]
  - PNEUMONIA [None]
  - RED BLOOD CELL SEDIMENTATION RATE INCREASED [None]
  - RENAL FAILURE ACUTE [None]
  - SPINAL CORD DISORDER [None]
